FAERS Safety Report 6805298-8 (Version None)
Quarter: 2010Q2

REPORT INFORMATION
  Report Type: 
  Country: None (occurrence: None)
  Receive Date: 20100628
  Receipt Date: 20071026
  Transmission Date: 20101027
  Serious: No
  Sender: FDA-Public Use
  Company Number: US-PFIZER INC-2007091454

PATIENT
  Sex: Female
  Weight: 61.363 kg

DRUGS (1)
  1. GEODON [Suspect]
     Indication: BIPOLAR II DISORDER
     Route: 048
     Dates: start: 20071022

REACTIONS (3)
  - CONSTIPATION [None]
  - INSOMNIA [None]
  - SPEECH DISORDER [None]
